FAERS Safety Report 22941832 (Version 2)
Quarter: 2023Q4

REPORT INFORMATION
  Report Type: Spontaneous
  Country: US (occurrence: None)
  Receive Date: 20230914
  Receipt Date: 20231020
  Transmission Date: 20240110
  Serious: No
  Sender: FDA-Public Use
  Company Number: 2023A205966

PATIENT
  Age: 11748 Day
  Sex: Female

DRUGS (1)
  1. FASENRA [Suspect]
     Active Substance: BENRALIZUMAB
     Dosage: UNKNOWN
     Route: 058

REACTIONS (5)
  - Incorrect dose administered by device [Unknown]
  - Device leakage [Unknown]
  - Wrong technique in device usage process [Unknown]
  - Product dose omission issue [Unknown]
  - Insurance issue [Unknown]

NARRATIVE: CASE EVENT DATE: 20230907
